FAERS Safety Report 15785896 (Version 1)
Quarter: 2019Q1

REPORT INFORMATION
  Report Type: Spontaneous
  Country: GB (occurrence: GB)
  Receive Date: 20190103
  Receipt Date: 20190103
  Transmission Date: 20190417
  Serious: Yes (Other)
  Sender: FDA-Public Use
  Company Number: GB-ALIMERA SCIENCES LIMITED-GB-IL-2018-004214

PATIENT

DRUGS (1)
  1. ILUVIEN [Suspect]
     Active Substance: FLUOCINOLONE ACETONIDE
     Indication: DIABETIC RETINAL OEDEMA
     Dosage: 0.25 ?G, QD, UNKNOWN EYE
     Route: 031
     Dates: start: 20181210, end: 20181217

REACTIONS (3)
  - Device dislocation [Recovered/Resolved]
  - Medical device removal [Recovered/Resolved]
  - Corneal oedema [Unknown]

NARRATIVE: CASE EVENT DATE: 20181210
